FAERS Safety Report 24680665 (Version 4)
Quarter: 2025Q3

REPORT INFORMATION
  Report Type: Report from Study
  Country: US (occurrence: US)
  Receive Date: 20241129
  Receipt Date: 20250809
  Transmission Date: 20251021
  Serious: Yes (Other)
  Sender: ALEXION PHARMACEUTICALS
  Company Number: US-AstraZeneca-CH-00718442A

PATIENT
  Age: 52 Year
  Sex: Male
  Weight: 83.46 kg

DRUGS (5)
  1. SYMBICORT [Suspect]
     Active Substance: BUDESONIDE\FORMOTEROL FUMARATE DIHYDRATE
  2. TEZSPIRE [Suspect]
     Active Substance: TEZEPELUMAB-EKKO
     Indication: Asthma
     Dosage: 2101 MILLIGRAM, Q4W
  3. OMEPRAZOLE [Suspect]
     Active Substance: OMEPRAZOLE
     Route: 065
  4. AZITHROMYCIN [Concomitant]
     Active Substance: AZITHROMYCIN
     Route: 065
  5. PREDNISONE [Concomitant]
     Active Substance: PREDNISONE
     Route: 065

REACTIONS (29)
  - Pulmonary mass [Unknown]
  - Pneumonia [Unknown]
  - Essential hypertension [Unknown]
  - Type V hyperlipidaemia [Unknown]
  - Oral candidiasis [Unknown]
  - Mixed anxiety and depressive disorder [Unknown]
  - Gastrooesophageal reflux disease [Unknown]
  - Asthma [Unknown]
  - Chronic obstructive pulmonary disease [Unknown]
  - Lung disorder [Unknown]
  - Cough [Unknown]
  - Obstructive sleep apnoea syndrome [Unknown]
  - Orthopnoea [Unknown]
  - Snoring [Unknown]
  - Obesity [Unknown]
  - Radioisotope scan abnormal [Unknown]
  - Dyspnoea [Unknown]
  - Bronchitis [Unknown]
  - Hypersensitivity [Unknown]
  - Wheezing [Unknown]
  - Anxiety [Unknown]
  - Depression [Unknown]
  - Dry mouth [Unknown]
  - Malaise [Unknown]
  - Chest discomfort [Unknown]
  - Upper-airway cough syndrome [Unknown]
  - Productive cough [Unknown]
  - Drug ineffective [Unknown]
  - Influenza [Unknown]
